FAERS Safety Report 9246254 (Version 2)
Quarter: 2013Q2

REPORT INFORMATION
  Report Type: Report from Study
  Country: EC (occurrence: EC)
  Receive Date: 20130422
  Receipt Date: 20130513
  Transmission Date: 20140414
  Serious: No
  Sender: FDA-Public Use
  Company Number: EC-ROCHE-1215304

PATIENT
  Age: 28 Year
  Sex: Female

DRUGS (2)
  1. ROACCUTANE [Suspect]
     Indication: ACNE
     Route: 048
     Dates: end: 201111
  2. ROACCUTANE [Suspect]
     Route: 048
     Dates: start: 20120201, end: 20121215

REACTIONS (1)
  - Pregnancy [Unknown]
